FAERS Safety Report 21559909 (Version 9)
Quarter: 2023Q2

REPORT INFORMATION
  Report Type: Report from Study
  Country: US (occurrence: US)
  Receive Date: 20221107
  Receipt Date: 20230613
  Transmission Date: 20230722
  Serious: No
  Sender: FDA-Public Use
  Company Number: US-002147023-NVSC2022US249772

PATIENT
  Sex: Male

DRUGS (1)
  1. COSENTYX [Suspect]
     Active Substance: SECUKINUMAB
     Indication: Psoriasis
     Dosage: 300 MG, QMO
     Route: 058

REACTIONS (8)
  - Musculoskeletal stiffness [Unknown]
  - Pain in extremity [Unknown]
  - Arthralgia [Unknown]
  - Intervertebral disc protrusion [Unknown]
  - Pain [Recovering/Resolving]
  - Nail ridging [Unknown]
  - Psoriasis [Unknown]
  - Dry skin [Recovering/Resolving]
